FAERS Safety Report 6428933-5 (Version None)
Quarter: 2009Q4

REPORT INFORMATION
  Report Type: 
  Country: None (occurrence: None)
  Receive Date: 20091104
  Receipt Date: 20091104
  Transmission Date: 20100525
  Serious: Yes (Life-Threatening, Other)
  Sender: FDA-Public Use
  Company Number: None

PATIENT
  Age: 65 Year
  Sex: Male
  Weight: 93.2 kg

DRUGS (4)
  1. ALDARA [Suspect]
     Indication: BASAL CELL CARCINOMA
     Dosage: TINY AMOUNT 5 NIGHTS A WEEK 1 MONTH
     Dates: start: 20050101
  2. ALDARA [Suspect]
     Indication: BASAL CELL CARCINOMA
     Dosage: TINY AMOUNT 5 NIGHTS A WEEK 1 MONTH
     Dates: start: 20060101
  3. ALDARA [Suspect]
     Indication: BASAL CELL CARCINOMA
     Dosage: TINY AMOUNT 5 NIGHTS A WEEK 1 MONTH
     Dates: start: 20070101
  4. ALDARA [Suspect]
     Indication: BASAL CELL CARCINOMA
     Dosage: TINY AMOUNT 5 NIGHTS A WEEK 1 MONTH
     Dates: start: 20090101

REACTIONS (15)
  - AGITATION [None]
  - ANXIETY [None]
  - BACK PAIN [None]
  - CANDIDIASIS [None]
  - CRYING [None]
  - DEPRESSION [None]
  - GASTROINTESTINAL DISORDER [None]
  - IMMUNE SYSTEM DISORDER [None]
  - INSOMNIA [None]
  - IRRITABILITY [None]
  - MULTIPLE CHEMICAL SENSITIVITY [None]
  - NERVOUS SYSTEM DISORDER [None]
  - NEUROPATHY PERIPHERAL [None]
  - PAIN [None]
  - WEIGHT DECREASED [None]
